FAERS Safety Report 15331802 (Version 1)
Quarter: 2018Q3

REPORT INFORMATION
  Report Type: Spontaneous
  Country: US (occurrence: US)
  Receive Date: 20180829
  Receipt Date: 20180829
  Transmission Date: 20181010
  Serious: Yes (Other)
  Sender: FDA-Public Use
  Company Number: US-CELGENEUS-USA-20180808069

PATIENT
  Sex: Male

DRUGS (1)
  1. REVLIMID [Suspect]
     Active Substance: LENALIDOMIDE
     Indication: PLASMA CELL MYELOMA
     Dosage: 25 MILLIGRAM
     Route: 048
     Dates: start: 20180514

REACTIONS (4)
  - Headache [Unknown]
  - Vasodilatation [Unknown]
  - Pulmonary thrombosis [Unknown]
  - Nausea [Unknown]

NARRATIVE: CASE EVENT DATE: 2018
